FAERS Safety Report 18574540 (Version 1)
Quarter: 2020Q4

REPORT INFORMATION
  Report Type: Report from Study
  Country: US (occurrence: US)
  Receive Date: 20201203
  Receipt Date: 20201203
  Transmission Date: 20210114
  Serious: Yes (Hospitalization)
  Sender: FDA-Public Use
  Company Number: US-MYLANLABS-2020M1098951

PATIENT
  Age: 14 Year

DRUGS (1)
  1. SALBUTAMOL [Suspect]
     Active Substance: ALBUTEROL
     Dosage: 18 PUFFS OF 90MCG/INHALATION THROUGH METERED DOSE INHALAR

REACTIONS (2)
  - Ventricular extrasystoles [Recovered/Resolved]
  - Left ventricular hypertrophy [Recovered/Resolved]
